FAERS Safety Report 11756573 (Version 2)
Quarter: 2016Q1

REPORT INFORMATION
  Report Type: Report from Study
  Country: CA (occurrence: CA)
  Receive Date: 20151119
  Receipt Date: 20160331
  Transmission Date: 20160525
  Serious: Yes (Other)
  Sender: FDA-Public Use
  Company Number: CA-ROCHE-1642122

PATIENT
  Age: 83 Year
  Sex: Male

DRUGS (10)
  1. TECTA [Concomitant]
     Active Substance: PANTOPRAZOLE MAGNESIUM
  2. ESBRIET [Suspect]
     Active Substance: PIRFENIDONE
     Route: 048
     Dates: start: 20150929
  3. ESBRIET [Suspect]
     Active Substance: PIRFENIDONE
     Indication: IDIOPATHIC PULMONARY FIBROSIS
     Route: 048
     Dates: start: 20150922
  4. ATORVASTATIN [Concomitant]
     Active Substance: ATORVASTATIN
  5. PROPRANOLOL [Concomitant]
     Active Substance: PROPRANOLOL\PROPRANOLOL HYDROCHLORIDE
  6. LOSARTAN. [Concomitant]
     Active Substance: LOSARTAN
  7. VENTOLIN [Concomitant]
     Active Substance: ALBUTEROL SULFATE
  8. ACETYLSALICYLIC ACID (EC) [Concomitant]
  9. ESBRIET [Suspect]
     Active Substance: PIRFENIDONE
     Route: 048
     Dates: start: 20151006
  10. ADVAIR HFA [Concomitant]
     Active Substance: FLUTICASONE PROPIONATE\SALMETEROL XINAFOATE
     Route: 065

REACTIONS (9)
  - Mass [Not Recovered/Not Resolved]
  - Insomnia [Unknown]
  - Dry skin [Unknown]
  - Fatigue [Not Recovered/Not Resolved]
  - Erythema [Unknown]
  - Pulmonary function test decreased [Unknown]
  - Hypoaesthesia [Not Recovered/Not Resolved]
  - Cough [Not Recovered/Not Resolved]
  - Pruritus [Recovering/Resolving]

NARRATIVE: CASE EVENT DATE: 20150925
